FAERS Safety Report 5030798-3 (Version None)
Quarter: 2006Q2

REPORT INFORMATION
  Report Type: 
  Country: None (occurrence: None)
  Receive Date: 20060614
  Receipt Date: 20060605
  Transmission Date: 20061013
  Serious: Yes (Death, Hospitalization)
  Sender: FDA-Public Use
  Company Number: 2006072411

PATIENT
  Age: 15 Year
  Sex: Female

DRUGS (5)
  1. ZOLOFT [Suspect]
     Indication: DEPRESSION
     Dosage: 50 MG, 1 IN 1 D
  2. CYCLOSPORINE [Concomitant]
  3. FENTANYL CITRATE [Concomitant]
  4. MORPHINE [Concomitant]
  5. METHADONE HCL [Concomitant]

REACTIONS (4)
  - SEPSIS [None]
  - SUDDEN DEATH [None]
  - VENTRICULAR TACHYCARDIA [None]
  - VOMITING [None]
